FAERS Safety Report 25035665 (Version 1)
Quarter: 2025Q1

REPORT INFORMATION
  Report Type: Spontaneous
  Country: US (occurrence: US)
  Receive Date: 20250304
  Receipt Date: 20250304
  Transmission Date: 20250409
  Serious: Yes (Hospitalization)
  Sender: KARYOPHARM THERAPEUTICS
  Company Number: US-KARYOPHARM-2025KPT000215

PATIENT

DRUGS (17)
  1. XPOVIO [Suspect]
     Active Substance: SELINEXOR
     Indication: Plasma cell myeloma
     Dosage: 80 MG, WEEKLY
     Route: 048
  2. ACYCLOVIR [Concomitant]
     Active Substance: ACYCLOVIR
  3. AZITHROMYCIN [Concomitant]
     Active Substance: AZITHROMYCIN
  4. ELIQUIS [Concomitant]
     Active Substance: APIXABAN
  5. BACLOFEN [Concomitant]
     Active Substance: BACLOFEN
  6. DEXAMETHASONE [Concomitant]
     Active Substance: DEXAMETHASONE
  7. ESCITALOPRAM [Concomitant]
     Active Substance: ESCITALOPRAM OXALATE
  8. FINASTERIDE [Concomitant]
     Active Substance: FINASTERIDE
  9. GABAPENTIN [Concomitant]
     Active Substance: GABAPENTIN
  10. HYDROMORPHONE [Concomitant]
     Active Substance: HYDROMORPHONE
  11. LISINOPRIL [Concomitant]
     Active Substance: LISINOPRIL
  12. LORATADINE [Concomitant]
     Active Substance: LORATADINE
  13. METFORMIN [Concomitant]
     Active Substance: METFORMIN HYDROCHLORIDE
  14. MORPHINE SULFATE [Concomitant]
     Active Substance: MORPHINE SULFATE
  15. OLANZAPINE [Concomitant]
     Active Substance: OLANZAPINE
  16. ZOFRAN [Concomitant]
     Active Substance: ONDANSETRON HYDROCHLORIDE
  17. TAMSULOSIN [Concomitant]
     Active Substance: TAMSULOSIN

REACTIONS (3)
  - Acute kidney injury [Unknown]
  - Glomerular filtration rate decreased [Unknown]
  - Neutropenia [Unknown]
